FAERS Safety Report 13042173 (Version 2)
Quarter: 2017Q1

REPORT INFORMATION
  Report Type: Report from Study
  Country: US (occurrence: US)
  Receive Date: 20161219
  Receipt Date: 20170127
  Transmission Date: 20170428
  Serious: Yes (Other)
  Sender: FDA-Public Use
  Company Number: PHEH2016US032948

PATIENT
  Age: 62 Year
  Sex: Male
  Weight: 66.67 kg

DRUGS (17)
  1. ADVAIR DISKUS [Concomitant]
     Active Substance: FLUTICASONE PROPIONATE\SALMETEROL XINAFOATE
     Indication: PRODUCT USED FOR UNKNOWN INDICATION
     Dosage: UNK UNK, QD
     Route: 055
  2. BACLOFEN. [Concomitant]
     Active Substance: BACLOFEN
     Indication: PRODUCT USED FOR UNKNOWN INDICATION
     Dosage: 10 MG, TID
     Route: 048
     Dates: start: 20160912
  3. VICODIN [Concomitant]
     Active Substance: ACETAMINOPHEN\HYDROCODONE BITARTRATE
     Indication: PRODUCT USED FOR UNKNOWN INDICATION
     Dosage: 1 DF (5-300 MG), Q6H (PRN) H/A
     Route: 048
     Dates: start: 20140626
  4. CELEBREX [Concomitant]
     Active Substance: CELECOXIB
     Indication: PRODUCT USED FOR UNKNOWN INDICATION
     Dosage: UNK
     Route: 065
  5. VIAGRA [Concomitant]
     Active Substance: SILDENAFIL CITRATE
     Indication: PRODUCT USED FOR UNKNOWN INDICATION
     Dosage: UNK UNK, PRN
     Route: 048
  6. VENTOLIN HFA [Concomitant]
     Active Substance: ALBUTEROL SULFATE
     Indication: PRODUCT USED FOR UNKNOWN INDICATION
     Dosage: 108 (90 BASE) MCG
     Route: 065
  7. SINGULAIR [Concomitant]
     Active Substance: MONTELUKAST SODIUM
     Indication: PRODUCT USED FOR UNKNOWN INDICATION
     Dosage: UNK UNK, QD
     Route: 048
  8. FLUORIDE [Concomitant]
     Active Substance: SODIUM FLUORIDE
     Indication: PRODUCT USED FOR UNKNOWN INDICATION
     Dosage: 1 DF, QD
     Route: 055
  9. ALBUTEROL. [Concomitant]
     Active Substance: ALBUTEROL
     Indication: PRODUCT USED FOR UNKNOWN INDICATION
     Dosage: UNK
     Route: 065
  10. GILENYA [Suspect]
     Active Substance: FINGOLIMOD HYDROCHLORIDE
     Indication: MULTIPLE SCLEROSIS
     Dosage: 0.5 MG, QD
     Route: 048
  11. ASPIRIN. [Concomitant]
     Active Substance: ASPIRIN
     Indication: PRODUCT USED FOR UNKNOWN INDICATION
     Dosage: 81 MG, QD
     Route: 048
  12. PREVACID [Concomitant]
     Active Substance: LANSOPRAZOLE
     Indication: PRODUCT USED FOR UNKNOWN INDICATION
     Dosage: UNK
     Route: 065
  13. HYDROCODONE [Concomitant]
     Active Substance: HYDROCODONE
     Indication: HEADACHE
     Dosage: UNK UNK, PRN
     Route: 065
  14. BUPROPION HCL [Concomitant]
     Active Substance: BUPROPION HYDROCHLORIDE
     Indication: PRODUCT USED FOR UNKNOWN INDICATION
     Dosage: 150 MG (12 HR), BID
     Route: 048
  15. ATORVASTATIN CALCIUM. [Suspect]
     Active Substance: ATORVASTATIN CALCIUM
     Indication: PRODUCT USED FOR UNKNOWN INDICATION
     Dosage: 20 MG, QD
     Route: 048
  16. AVONEX [Concomitant]
     Active Substance: INTERFERON BETA-1A
     Indication: PRODUCT USED FOR UNKNOWN INDICATION
     Dosage: UNK
     Route: 065
  17. BRILINTA [Concomitant]
     Active Substance: TICAGRELOR
     Indication: PRODUCT USED FOR UNKNOWN INDICATION
     Dosage: 90 MG, BID
     Route: 048

REACTIONS (34)
  - Pancreatic steatosis [Unknown]
  - Gait disturbance [Unknown]
  - Paraesthesia [Unknown]
  - Tendonitis [Unknown]
  - Essential tremor [Unknown]
  - Hypertension [Unknown]
  - Alanine aminotransferase increased [Recovered/Resolved]
  - Alanine aminotransferase increased [Unknown]
  - Hyperadrenalism [Unknown]
  - Sensory disturbance [Unknown]
  - Red blood cell sedimentation rate increased [Recovered/Resolved]
  - Hypoaesthesia [Unknown]
  - Cough [Unknown]
  - Blood alkaline phosphatase increased [Unknown]
  - Anxiety [Unknown]
  - Dizziness [Unknown]
  - Vertigo [Unknown]
  - Peripheral vascular disorder [Unknown]
  - Prostate infection [Unknown]
  - Insomnia [Unknown]
  - Asthenia [Unknown]
  - Hiatus hernia [Unknown]
  - Myocardial infarction [Unknown]
  - Muscle tightness [Recovered/Resolved]
  - Dyskinesia [Unknown]
  - Aspartate aminotransferase increased [Unknown]
  - Muscle spasms [Recovered/Resolved]
  - Pubic pain [Unknown]
  - Arthralgia [Unknown]
  - Increased tendency to bruise [Unknown]
  - Blood creatine phosphokinase increased [Unknown]
  - Tinel^s sign [Unknown]
  - Depression [Unknown]
  - Blood alkaline phosphatase increased [Recovered/Resolved]

NARRATIVE: CASE EVENT DATE: 20161031
